FAERS Safety Report 6677612-8 (Version None)
Quarter: 2010Q2

REPORT INFORMATION
  Report Type: 
  Country: None (occurrence: None)
  Receive Date: 20100412
  Receipt Date: 20100308
  Transmission Date: 20101027
  Serious: No
  Sender: FDA-Public Use
  Company Number: US-ALEXION-A201000269

PATIENT
  Sex: Female

DRUGS (3)
  1. SOLIRIS [Suspect]
     Indication: PAROXYSMAL NOCTURNAL HAEMOGLOBINURIA
     Dosage: UNK
  2. FOLIC ACID [Concomitant]
     Dosage: 1 MG, QD
     Route: 048
  3. COUMADIN [Concomitant]
     Dosage: 7.5 MG/10 MG ALTERNATE DAYS
     Route: 048

REACTIONS (4)
  - FATIGUE [None]
  - JAUNDICE [None]
  - OCULAR ICTERUS [None]
  - TRANSFUSION [None]
